FAERS Safety Report 23442860 (Version 1)
Quarter: 2024Q1

REPORT INFORMATION
  Report Type: Spontaneous
  Country: CA (occurrence: CA)
  Receive Date: 20240125
  Receipt Date: 20240125
  Transmission Date: 20240409
  Serious: Yes (Other)
  Sender: FDA-Public Use
  Company Number: CA-SANDOZ-SDZ2024CA007691

PATIENT
  Age: 5 Year
  Sex: Male

DRUGS (5)
  1. MOMETASONE [Suspect]
     Active Substance: MOMETASONE
     Indication: Tonsillar hypertrophy
     Dosage: UNK (SPRAY, METERED DOSE)
     Route: 045
  2. MOMETASONE [Suspect]
     Active Substance: MOMETASONE
     Indication: Pharyngitis
  3. FLOVENT HFA [Concomitant]
     Active Substance: FLUTICASONE PROPIONATE
     Indication: Product used for unknown indication
     Dosage: UNK
     Route: 065
  4. TYLENOL [Concomitant]
     Active Substance: ACETAMINOPHEN
     Indication: Product used for unknown indication
     Dosage: UNK
     Route: 065
  5. VENTOLIN HFA [Concomitant]
     Active Substance: ALBUTEROL SULFATE
     Indication: Product used for unknown indication
     Dosage: UNK (METERED-DOSE)
     Route: 065

REACTIONS (3)
  - Headache [Recovering/Resolving]
  - Nausea [Recovering/Resolving]
  - Vomiting [Recovering/Resolving]
